FAERS Safety Report 13312980 (Version 1)
Quarter: 2017Q1

REPORT INFORMATION
  Report Type: Spontaneous
  Country: US (occurrence: US)
  Receive Date: 20170309
  Receipt Date: 20170309
  Transmission Date: 20170428
  Serious: Yes (Hospitalization)
  Sender: FDA-Public Use
  Company Number: US-IMPAX LABORATORIES, INC-2017-IPXL-00616

PATIENT
  Age: 29 Year
  Sex: Female
  Weight: 70.3 kg

DRUGS (5)
  1. PROPOFOL. [Concomitant]
     Active Substance: PROPOFOL
     Indication: SEDATION
     Dosage: A TOTAL OF 340 MG VIA INFUSION THROUGHT 100 MINUTES
     Route: 042
  2. VERSED [Concomitant]
     Active Substance: MIDAZOLAM HYDROCHLORIDE
     Indication: SEDATION
     Dosage: 2 MG, UNK
  3. LIDOCAINE. [Suspect]
     Active Substance: LIDOCAINE
     Indication: PRODUCT USED FOR UNKNOWN INDICATION
     Dosage: TOTAL 50 ML OF 1% LIDOCAINE IN 1:200,000 EPINEPHRINE (ABOUT 7.0MG/KG) IN SMALL INTERVAL
     Route: 058
  4. PROPOFOL. [Concomitant]
     Active Substance: PROPOFOL
     Dosage: 100 MG; UNK
     Route: 065
  5. ADRENACLICK [Suspect]
     Active Substance: EPINEPHRINE
     Indication: PRODUCT USED FOR UNKNOWN INDICATION
     Dosage: 1:200,000; UNK
     Route: 058

REACTIONS (6)
  - Retching [Recovered/Resolved]
  - Grimacing [Recovered/Resolved]
  - Toxicity to various agents [Recovered/Resolved]
  - Seizure [Recovered/Resolved]
  - Chills [Recovered/Resolved]
  - Sinus tachycardia [Recovered/Resolved]
